FAERS Safety Report 25169063 (Version 1)
Quarter: 2025Q2

REPORT INFORMATION
  Report Type: Spontaneous
  Country: FR (occurrence: FR)
  Receive Date: 20250407
  Receipt Date: 20250407
  Transmission Date: 20250716
  Serious: Yes (Other)
  Sender: ORGANON
  Company Number: None

PATIENT
  Age: 26 Year
  Sex: Male

DRUGS (6)
  1. MIRTAZAPINE [Suspect]
     Active Substance: MIRTAZAPINE
  2. TRAMADOL HYDROCHLORIDE [Suspect]
     Active Substance: TRAMADOL HYDROCHLORIDE
  3. COCAINE [Suspect]
     Active Substance: COCAINE
  4. ALPRAZOLAM [Suspect]
     Active Substance: ALPRAZOLAM
  5. ZOLPIDEM [Suspect]
     Active Substance: ZOLPIDEM TARTRATE
  6. PRAZEPAM [Suspect]
     Active Substance: PRAZEPAM

REACTIONS (6)
  - Somnolence [Recovered/Resolved]
  - Miosis [Recovered/Resolved]
  - Dry mouth [Recovered/Resolved]
  - Vomiting [Recovered/Resolved]
  - Drug use disorder [Unknown]
  - Substance use disorder [Unknown]

NARRATIVE: CASE EVENT DATE: 20250101
